FAERS Safety Report 8539225-2 (Version None)
Quarter: 2012Q3

REPORT INFORMATION
  Report Type: 
  Country: None (occurrence: None)
  Receive Date: 20120726
  Receipt Date: 20120720
  Transmission Date: 20120928
  Serious: Yes (Other)
  Sender: FDA-Public Use
  Company Number: US-PFIZER INC-2012176559

PATIENT
  Sex: Male

DRUGS (1)
  1. LYRICA [Suspect]
     Indication: NEURALGIA
     Dosage: 200 MG, 2X/DAY, (200MG IN THE MORNING AND 200 MG AT NIGHT)
     Dates: start: 20070101

REACTIONS (1)
  - INTERVERTEBRAL DISC DISORDER [None]
